FAERS Safety Report 17653811 (Version 1)
Quarter: 2020Q2

REPORT INFORMATION
  Report Type: Report from Study
  Country: None (occurrence: US)
  Receive Date: 20200409
  Receipt Date: 20200409
  Transmission Date: 20200713
  Serious: Yes (Hospitalization, Other)
  Sender: FDA-Public Use
  Company Number: US-ABBVIE-19K-163-3209518-00

PATIENT
  Age: 62 Year
  Sex: Male

DRUGS (3)
  1. HUMIRA [Suspect]
     Active Substance: ADALIMUMAB
     Route: 058
     Dates: start: 201911, end: 202004
  2. HUMIRA [Suspect]
     Active Substance: ADALIMUMAB
     Indication: CROHN^S DISEASE
     Route: 058
     Dates: start: 201812, end: 201904
  3. HUMIRA [Suspect]
     Active Substance: ADALIMUMAB
     Route: 058
     Dates: start: 201906, end: 201910

REACTIONS (12)
  - Haemorrhage [Recovered/Resolved]
  - Intestinal obstruction [Recovered/Resolved]
  - Drug ineffective [Recovered/Resolved]
  - Drug specific antibody present [Recovered/Resolved]
  - Colonic fistula [Recovered/Resolved]
  - Colostomy [Recovered/Resolved]
  - Stomal hernia [Unknown]
  - Procedural pain [Unknown]
  - Colostomy closure [Recovered/Resolved]
  - Intestinal adhesion lysis [Recovered/Resolved]
  - Blood test abnormal [Unknown]
  - Small intestinal stenosis [Unknown]

NARRATIVE: CASE EVENT DATE: 2019
